FAERS Safety Report 9683872 (Version 1)
Quarter: 2013Q4

REPORT INFORMATION
  Report Type: Spontaneous
  Country: US (occurrence: US)
  Receive Date: 20131112
  Receipt Date: 20131112
  Transmission Date: 20140711
  Serious: No
  Sender: FDA-Public Use
  Company Number: US-MALLINCKRODT-T201304413

PATIENT
  Sex: Male
  Weight: 76.19 kg

DRUGS (5)
  1. FENTANYL TRANSDERMAL SYSTEM [Suspect]
     Indication: RHEUMATOID ARTHRITIS
     Dosage: 100 UG/HR, 2 PATCHES Q72H
     Route: 062
  2. FENTANYL TRANSDERMAL SYSTEM [Suspect]
     Indication: CROHN^S DISEASE
  3. FENTANYL TRANSDERMAL SYSTEM [Suspect]
     Indication: ROTATOR CUFF SYNDROME
  4. OXYCODONE [Concomitant]
     Indication: ANALGESIC THERAPY
     Dosage: UNK
     Route: 048
  5. OXYCODONE [Concomitant]
     Indication: BREAKTHROUGH PAIN

REACTIONS (3)
  - Chills [Not Recovered/Not Resolved]
  - Drug effect delayed [Not Recovered/Not Resolved]
  - Drug effect decreased [Not Recovered/Not Resolved]
